FAERS Safety Report 5109677-9 (Version None)
Quarter: 2006Q3

REPORT INFORMATION
  Report Type: 
  Country: None (occurrence: None)
  Receive Date: 20060918
  Receipt Date: 20060901
  Transmission Date: 20061208
  Serious: Yes (Hospitalization)
  Sender: FDA-Public Use
  Company Number: 8017551

PATIENT
  Sex: Female

DRUGS (1)
  1. KEPPRA [Suspect]
     Indication: EPILEPSY
     Dosage: 1750 MG 2/D PO
     Route: 048
     Dates: start: 20010101

REACTIONS (3)
  - COLLAPSE OF LUNG [None]
  - DYSPHAGIA [None]
  - STATUS EPILEPTICUS [None]
